FAERS Safety Report 16333209 (Version 5)
Quarter: 2024Q1

REPORT INFORMATION
  Report Type: Spontaneous
  Country: US (occurrence: US)
  Receive Date: 20190520
  Receipt Date: 20240122
  Transmission Date: 20240409
  Serious: Yes (Other)
  Sender: FDA-Public Use
  Company Number: US-GILEAD-2019-0407968

PATIENT
  Age: 34 Year
  Sex: Male
  Weight: 54.422 kg

DRUGS (21)
  1. ATRIPLA [Suspect]
     Active Substance: EFAVIRENZ\EMTRICITABINE\TENOFOVIR DISOPROXIL FUMARATE
     Indication: HIV infection
     Dosage: UNK
     Route: 048
     Dates: start: 2010, end: 2018
  2. ATRIPLA [Suspect]
     Active Substance: EFAVIRENZ\EMTRICITABINE\TENOFOVIR DISOPROXIL FUMARATE
     Dosage: UNK
     Route: 048
     Dates: start: 201203, end: 201710
  3. DESCOVY [Concomitant]
     Active Substance: EMTRICITABINE\TENOFOVIR ALAFENAMIDE FUMARATE
  4. VITAMIN D NOS [Concomitant]
     Active Substance: VITAMIN D NOS
  5. TIVICAY [Concomitant]
     Active Substance: DOLUTEGRAVIR SODIUM
  6. LOSARTAN [Concomitant]
     Active Substance: LOSARTAN
  7. LANTUS [Concomitant]
     Active Substance: INSULIN GLARGINE
  8. NOVOLOG [Concomitant]
     Active Substance: INSULIN ASPART
  9. ALBUTEROL [Concomitant]
     Active Substance: ALBUTEROL
  10. MEGESTROL [Concomitant]
     Active Substance: MEGESTROL
  11. ALBUTEROL SULFATE [Concomitant]
     Active Substance: ALBUTEROL SULFATE
  12. CREON [Concomitant]
     Active Substance: PANCRELIPASE AMYLASE\PANCRELIPASE LIPASE\PANCRELIPASE PROTEASE
  13. FEXOFENADINE HYDROCHLORIDE [Concomitant]
     Active Substance: FEXOFENADINE HYDROCHLORIDE
  14. CHLORPROMAZINE [Concomitant]
     Active Substance: CHLORPROMAZINE
  15. LEVEMIR [Concomitant]
     Active Substance: INSULIN DETEMIR
  16. PRAVASTATIN [Concomitant]
     Active Substance: PRAVASTATIN
  17. DULOXETINE [Concomitant]
     Active Substance: DULOXETINE
  18. RANITIDINE [Concomitant]
     Active Substance: RANITIDINE
  19. MONTELUKAST [Concomitant]
     Active Substance: MONTELUKAST SODIUM
  20. FAMOTIDINE [Concomitant]
     Active Substance: FAMOTIDINE
  21. HYDRALAZINE [Concomitant]
     Active Substance: HYDRALAZINE HYDROCHLORIDE

REACTIONS (16)
  - Osteoporosis [Unknown]
  - Renal injury [Unknown]
  - Chronic kidney disease [Not Recovered/Not Resolved]
  - End stage renal disease [Not Recovered/Not Resolved]
  - Emotional distress [Not Recovered/Not Resolved]
  - Economic problem [Not Recovered/Not Resolved]
  - Anhedonia [Not Recovered/Not Resolved]
  - Quality of life decreased [Unknown]
  - Decreased appetite [Unknown]
  - Anxiety [Not Recovered/Not Resolved]
  - Pain [Not Recovered/Not Resolved]
  - Fatigue [Unknown]
  - Bone demineralisation [Not Recovered/Not Resolved]
  - Depression [Not Recovered/Not Resolved]
  - Visual impairment [Unknown]
  - Loss of personal independence in daily activities [Unknown]

NARRATIVE: CASE EVENT DATE: 20100501
